FAERS Safety Report 5711992-2 (Version None)
Quarter: 2008Q2

REPORT INFORMATION
  Report Type: 
  Country: None (occurrence: None)
  Receive Date: 20080415
  Receipt Date: 20080401
  Transmission Date: 20081010
  Serious: Yes (Other)
  Sender: FDA-Public Use
  Company Number: 2008000762

PATIENT
  Sex: Female

DRUGS (3)
  1. TARCEVA [Suspect]
     Indication: LUNG NEOPLASM MALIGNANT
     Dosage: (150 MG, QD), ORAL; (150 MG, ONCE EVERY 2 DAYS), ORAL; (150 MG, QD), ORAL
     Route: 048
     Dates: start: 20071123, end: 20080121
  2. TARCEVA [Suspect]
     Indication: LUNG NEOPLASM MALIGNANT
     Dosage: (150 MG, QD), ORAL; (150 MG, ONCE EVERY 2 DAYS), ORAL; (150 MG, QD), ORAL
     Route: 048
     Dates: start: 20080122, end: 20080321
  3. TARCEVA [Suspect]
     Indication: LUNG NEOPLASM MALIGNANT
     Dosage: (150 MG, QD), ORAL; (150 MG, ONCE EVERY 2 DAYS), ORAL; (150 MG, QD), ORAL
     Route: 048
     Dates: start: 20080322

REACTIONS (5)
  - DYSPNOEA [None]
  - NEOPLASM PROGRESSION [None]
  - PRODUCTIVE COUGH [None]
  - PULMONARY OEDEMA [None]
  - RASH PUSTULAR [None]
